FAERS Safety Report 21990282 (Version 1)
Quarter: 2023Q1

REPORT INFORMATION
  Report Type: Spontaneous
  Country: NL (occurrence: NL)
  Receive Date: 20230214
  Receipt Date: 20230214
  Transmission Date: 20230418
  Serious: Yes (Other)
  Sender: FDA-Public Use
  Company Number: None

PATIENT
  Sex: Male
  Weight: 96 kg

DRUGS (1)
  1. DEXAMETHASONE SODIUM PHOSPHATE [Suspect]
     Active Substance: DEXAMETHASONE SODIUM PHOSPHATE
     Indication: Prophylaxis
     Dosage: 3 GTT DAILY; 1 DROP 3 TIMES A DAY, BRAND NAME NOT SPECIFIED
     Route: 065
     Dates: start: 20221117

REACTIONS (1)
  - Eye haemorrhage [Not Recovered/Not Resolved]
